FAERS Safety Report 17291418 (Version 2)
Quarter: 2025Q2

REPORT INFORMATION
  Report Type: Spontaneous
  Country: IT (occurrence: IT)
  Receive Date: 20200121
  Receipt Date: 20250621
  Transmission Date: 20250716
  Serious: Yes (Hospitalization, Other)
  Sender: AUROBINDO
  Company Number: IT-11ACLEODS PHARHA UK LTD-NAC20L9024595

PATIENT
  Age: 77 Year
  Sex: Female

DRUGS (5)
  1. ARIPIPRAZOLE [Suspect]
     Active Substance: ARIPIPRAZOLE
     Indication: Dementia
     Dosage: 15 MILLIGRAM, ONCE A DAY
     Route: 065
  2. QUETIAPINE [Suspect]
     Active Substance: QUETIAPINE
     Indication: Dementia
     Dosage: 100 MILLIGRAM, 3 TIMES A DAY, (TITRATED UP TO 100X3 MG/DIE)
     Route: 065
  3. QUETIAPINE [Suspect]
     Active Substance: QUETIAPINE
     Route: 065
     Dates: start: 200205
  4. ASPIRIN [Concomitant]
     Active Substance: ASPIRIN
     Indication: Antiplatelet therapy
     Dosage: 160 MILLIGRAM, ONCE A DAY
     Route: 065
  5. CLONAZEPAM [Concomitant]
     Active Substance: CLONAZEPAM
     Indication: Product used for unknown indication
     Dosage: 0.5 MILLIGRAM, ONCE A DAY
     Route: 065

REACTIONS (4)
  - Cerebrovascular disorder [Unknown]
  - Pleurothotonus [Recovered/Resolved]
  - Drug ineffective [Unknown]
  - Off label use [Unknown]
